FAERS Safety Report 8330567-2 (Version None)
Quarter: 2012Q2

REPORT INFORMATION
  Report Type: 
  Country: None (occurrence: None)
  Receive Date: 20120502
  Receipt Date: 20120404
  Transmission Date: 20120825
  Serious: No
  Sender: FDA-Public Use
  Company Number: US-AMGEN-USASP2012021348

PATIENT
  Age: 34 Year
  Sex: Female

DRUGS (1)
  1. ENBREL [Suspect]
     Indication: RHEUMATOID ARTHRITIS
     Dosage: 50 MG, QWK
     Dates: start: 19990101, end: 20060101

REACTIONS (5)
  - RHEUMATOID ARTHRITIS [None]
  - ABDOMINAL PAIN [None]
  - MOBILITY DECREASED [None]
  - UTERINE CYST [None]
  - FATIGUE [None]
